FAERS Safety Report 6730324-4 (Version None)
Quarter: 2010Q2

REPORT INFORMATION
  Report Type: 
  Country: None (occurrence: None)
  Receive Date: 20100518
  Receipt Date: 20100513
  Transmission Date: 20101027
  Serious: Yes (Death, Hospitalization)
  Sender: FDA-Public Use
  Company Number: JP-ROCHE-698331

PATIENT
  Sex: Female

DRUGS (9)
  1. TOCILIZUMAB [Suspect]
     Indication: RHEUMATOID ARTHRITIS
     Route: 041
     Dates: start: 20090916, end: 20090916
  2. TOCILIZUMAB [Suspect]
     Route: 041
     Dates: start: 20091021, end: 20091021
  3. TOCILIZUMAB [Suspect]
     Route: 041
     Dates: start: 20091124, end: 20091124
  4. TOCILIZUMAB [Suspect]
     Route: 041
     Dates: start: 20091229, end: 20091229
  5. TOCILIZUMAB [Suspect]
     Route: 041
     Dates: start: 20100127, end: 20100127
  6. TOCILIZUMAB [Suspect]
     Route: 041
     Dates: start: 20100224, end: 20100224
  7. PREDNISOLONE [Concomitant]
     Dosage: DOSE FORM: PERORAL AGENT. DRUG REPORTED AS UNKNOWNDRUG (PREDNISOLONE).
     Route: 048
     Dates: end: 20100303
  8. CELECOXIB [Concomitant]
     Dosage: DRUG REPORTED AS CELECOX (CELECOXIB).
     Route: 048
     Dates: end: 20100303
  9. MUCOSTA [Concomitant]
     Dosage: DOSE FORM: PERORAL AGENT.
     Route: 048
     Dates: end: 20100303

REACTIONS (2)
  - INTERSTITIAL LUNG DISEASE [None]
  - PNEUMOCYSTIS JIROVECI PNEUMONIA [None]
